FAERS Safety Report 8386849-1 (Version None)
Quarter: 2012Q2

REPORT INFORMATION
  Report Type: 
  Country: None (occurrence: None)
  Receive Date: 20120525
  Receipt Date: 20120517
  Transmission Date: 20120825
  Serious: Yes (Hospitalization)
  Sender: FDA-Public Use
  Company Number: US-US-EMD SERONO, INC.-7023682

PATIENT
  Sex: Male
  Weight: 118 kg

DRUGS (7)
  1. REBIF [Suspect]
     Indication: MULTIPLE SCLEROSIS
     Route: 058
     Dates: start: 20081022
  2. ASPIRIN [Concomitant]
     Indication: BRAIN STEM STROKE
     Dates: end: 20100201
  3. CIALIS [Concomitant]
     Indication: ERECTILE DYSFUNCTION
  4. EFFEXOR [Concomitant]
     Indication: DEPRESSION
  5. SIMVASTATIN [Concomitant]
     Indication: BLOOD CHOLESTEROL INCREASED
  6. ACTOS [Concomitant]
     Indication: TYPE 2 DIABETES MELLITUS
  7. ARICEPT [Concomitant]
     Indication: PRODUCT USED FOR UNKNOWN INDICATION

REACTIONS (6)
  - BRAIN STEM STROKE [None]
  - ARTHRITIS [None]
  - WEIGHT INCREASED [None]
  - GAIT DISTURBANCE [None]
  - PAIN IN EXTREMITY [None]
  - DERMATITIS ATOPIC [None]
